FAERS Safety Report 6793312-8 (Version None)
Quarter: 2010Q2

REPORT INFORMATION
  Report Type: 
  Country: None (occurrence: None)
  Receive Date: 20100624
  Receipt Date: 20100301
  Transmission Date: 20101027
  Serious: Yes (Other)
  Sender: FDA-Public Use
  Company Number: US-MYLANLABS-2009S1020014

PATIENT
  Age: 59 Year
  Sex: Male
  Weight: 94.35 kg

DRUGS (12)
  1. CLOZAPINE [Suspect]
     Indication: SCHIZOPHRENIA
     Dosage: DOSE AT 1PM AND 9PM
     Route: 048
     Dates: start: 20090414, end: 20091114
  2. HYTRIN [Concomitant]
  3. DOCUSATE [Concomitant]
  4. VITAMIN TAB [Concomitant]
  5. VALPROIC ACID [Concomitant]
  6. UROXATRAL [Concomitant]
  7. RANITIDINE [Concomitant]
  8. SEROQUEL [Concomitant]
  9. OSCAL /00108001/ [Concomitant]
  10. LACTAID [Concomitant]
  11. TYLENOL [Concomitant]
  12. HALDOL [Concomitant]

REACTIONS (1)
  - GRANULOCYTOPENIA [None]
